FAERS Safety Report 4269188-X (Version None)
Quarter: 2004Q1

REPORT INFORMATION
  Report Type: 
  Country: None (occurrence: None)
  Receive Date: 20040113
  Receipt Date: 20031010
  Transmission Date: 20041129
  Serious: Yes (Death)
  Sender: FDA-Public Use
  Company Number: JP-GLAXOSMITHKLINE-B0311613A

PATIENT
  Age: 96 Year
  Sex: Female

DRUGS (7)
  1. MODACIN [Suspect]
     Indication: PNEUMONIA
     Dosage: 2G TWICE PER DAY
     Dates: start: 20031008, end: 20031009
  2. FUROSEMIDE [Suspect]
     Dosage: 40MG PER DAY
     Route: 042
     Dates: start: 20031009, end: 20031009
  3. LACTATED RINGER'S [Concomitant]
  4. NICORANDIL [Concomitant]
     Dosage: 20MG PER DAY
     Route: 048
     Dates: end: 20031009
  5. ISOSORBIDE [Concomitant]
     Dosage: 80MG PER DAY
     Route: 048
     Dates: end: 20031009
  6. NIFEDIPINE [Concomitant]
     Dosage: 40MG PER DAY
     Route: 048
  7. ALLOPURINOL [Concomitant]
     Route: 048
     Dates: end: 20031009

REACTIONS (1)
  - RENAL FAILURE ACUTE [None]
